FAERS Safety Report 8479474-5 (Version None)
Quarter: 2012Q2

REPORT INFORMATION
  Report Type: 
  Country: None (occurrence: None)
  Receive Date: 20120629
  Receipt Date: 20120622
  Transmission Date: 20120825
  Serious: Yes (Other)
  Sender: FDA-Public Use
  Company Number: HU-PFIZER INC-2012152975

PATIENT
  Age: 81 Year
  Sex: Male
  Weight: 73 kg

DRUGS (9)
  1. XALATAN [Suspect]
     Dosage: 0.05 MG, 1X/DAY
     Dates: start: 20120101, end: 20120101
  2. XETER [Concomitant]
     Dosage: UNK
  3. EDNYT [Concomitant]
     Dosage: UNK
  4. DIAPREL [Concomitant]
     Dosage: UNK
  5. AZOPT [Concomitant]
     Dosage: UNK
  6. VOLTAFLEX [Concomitant]
     Dosage: UNK
  7. METOPROLOL SUCCINATE [Concomitant]
     Dosage: UNK
  8. ASPIRIN [Concomitant]
     Dosage: UNK
  9. EZETIMIBE [Concomitant]
     Dosage: UNK

REACTIONS (4)
  - EYE PAIN [None]
  - EYE IRRITATION [None]
  - VISUAL ACUITY REDUCED [None]
  - VISION BLURRED [None]
